FAERS Safety Report 9464196 (Version 2)
Quarter: 2014Q1

REPORT INFORMATION
  Report Type: Spontaneous
  Country: US (occurrence: US)
  Receive Date: 20130819
  Receipt Date: 20140219
  Transmission Date: 20141002
  Serious: Yes (Hospitalization)
  Sender: FDA-Public Use
  Company Number: US-BAYER-2013-099571

PATIENT
  Age: 20 Year
  Sex: Female
  Weight: 72.56 kg

DRUGS (5)
  1. MELOXICAM [Concomitant]
     Dosage: 15 MG, UNK
     Route: 048
     Dates: start: 20100514
  2. DEPO-MEDROL [Concomitant]
     Dosage: 80 MG, UNK
     Route: 014
     Dates: start: 20100723
  3. YAZ [Suspect]
     Indication: ACNE
     Dosage: UNK
     Dates: start: 200901, end: 201008
  4. OCELLA [Suspect]
     Indication: ACNE
     Dosage: UNK
     Dates: start: 200901, end: 201008
  5. GIANVI [Suspect]
     Indication: ACNE
     Dosage: UNK
     Dates: start: 200901, end: 201008

REACTIONS (3)
  - Deep vein thrombosis [None]
  - Pain [None]
  - Pain [None]
